FAERS Safety Report 10407734 (Version 1)
Quarter: 2014Q3

REPORT INFORMATION
  Report Type: Spontaneous
  Country: US (occurrence: US)
  Receive Date: 20140825
  Receipt Date: 20140825
  Transmission Date: 20150326
  Serious: Yes (Death, Life-Threatening, Hospitalization)
  Sender: FDA-Public Use
  Company Number: US-B.I. PHARMACEUTICALS,INC./RIDGEFIELD-2014-BI-38487BP

PATIENT
  Age: 54 Year
  Sex: Male

DRUGS (15)
  1. PROVENTIL [Concomitant]
     Active Substance: ALBUTEROL
     Dosage: 15 MG
     Route: 065
  2. BYSTOLIC [Concomitant]
     Active Substance: NEBIVOLOL HYDROCHLORIDE
     Dosage: 10 MG
     Route: 048
  3. ASPIRIN. [Concomitant]
     Active Substance: ASPIRIN
     Dosage: 81 MG
     Route: 048
  4. TRAMADOL [Concomitant]
     Active Substance: TRAMADOL
     Indication: PAIN
     Dosage: 600 MG
     Route: 048
  5. ATROVENT [Concomitant]
     Active Substance: IPRATROPIUM BROMIDE
     Dosage: 3 MG
     Route: 055
  6. PRADAXA [Suspect]
     Active Substance: DABIGATRAN ETEXILATE MESYLATE
     Indication: PRODUCT USED FOR UNKNOWN INDICATION
     Dosage: 300 MG
     Route: 048
  7. TIAZAC [Concomitant]
     Active Substance: DILTIAZEM HYDROCHLORIDE
     Dosage: 180 MG
     Route: 048
  8. LEXAPRO [Concomitant]
     Active Substance: ESCITALOPRAM OXALATE
     Dosage: 10 MG
     Route: 048
  9. K-DUR [Concomitant]
     Active Substance: POTASSIUM CHLORIDE
     Dosage: 40 MEQ
     Route: 048
  10. SYNTHROID [Concomitant]
     Active Substance: LEVOTHYROXINE SODIUM
     Dosage: 100 MCG
     Route: 048
  11. LASIX [Concomitant]
     Active Substance: FUROSEMIDE
     Dosage: 120 MG
     Route: 048
  12. LYRICA [Concomitant]
     Active Substance: PREGABALIN
     Dosage: 300 MG
     Route: 048
  13. TOPAMAX [Concomitant]
     Active Substance: TOPIRAMATE
     Dosage: 200 MG
     Route: 048
  14. VENTOLIN [Concomitant]
     Active Substance: ALBUTEROL SULFATE
     Indication: DYSPNOEA
     Dosage: 12 PUF
     Route: 055
  15. PROTONIX [Concomitant]
     Active Substance: PANTOPRAZOLE SODIUM
     Dosage: 80 MG
     Route: 048

REACTIONS (11)
  - Gastrointestinal haemorrhage [Unknown]
  - Renal failure acute [Fatal]
  - Cardiac arrest [Unknown]
  - Metabolic acidosis [Unknown]
  - Pneumonia [Fatal]
  - Acute respiratory failure [Fatal]
  - Hyperkalaemia [Fatal]
  - Septic shock [Unknown]
  - Acute hepatic failure [Unknown]
  - Petechiae [Unknown]
  - Coagulopathy [Unknown]

NARRATIVE: CASE EVENT DATE: 20130903
